FAERS Safety Report 15289895 (Version 1)
Quarter: 2018Q3

REPORT INFORMATION
  Report Type: Spontaneous
  Country: US (occurrence: US)
  Receive Date: 20180804
  Receipt Date: 20180804
  Transmission Date: 20181010
  Serious: No
  Sender: FDA-Public Use
  Company Number: None

PATIENT
  Age: 62 Year
  Sex: Male

DRUGS (1)
  1. REPATHA [Suspect]
     Active Substance: EVOLOCUMAB
     Indication: HYPERLIPIDAEMIA
     Dosage: 140MG EVERY 2 WEEKS  SQ
     Route: 058
     Dates: start: 20180613, end: 20180719

REACTIONS (2)
  - Influenza like illness [None]
  - Abdominal pain upper [None]

NARRATIVE: CASE EVENT DATE: 20180613
